FAERS Safety Report 11140330 (Version 1)
Quarter: 2015Q2

REPORT INFORMATION
  Report Type: Spontaneous
  Country: US (occurrence: None)
  Receive Date: 20150522
  Receipt Date: 20150522
  Transmission Date: 20150821
  Serious: Yes (Other)
  Sender: FDA-Public Use
  Company Number: 001927473A

PATIENT
  Age: 16 Year
  Sex: Female

DRUGS (2)
  1. X OUT CLEANSING BODY BAR [Suspect]
     Active Substance: SALICYLIC ACID
     Indication: ACNE
     Dosage: ONCE DAILY DERMAL
     Route: 061
     Dates: start: 20150216
  2. X-OUT WASH-IN TREATMENT [Suspect]
     Active Substance: BENZOYL PEROXIDE
     Indication: ACNE
     Dosage: ONCE DAILY DERMAL
     Route: 061
     Dates: start: 20150216

REACTIONS (3)
  - Urticaria [None]
  - Swelling face [None]
  - Pharyngeal oedema [None]

NARRATIVE: CASE EVENT DATE: 20150216
